FAERS Safety Report 17649585 (Version 3)
Quarter: 2020Q2

REPORT INFORMATION
  Report Type: Spontaneous
  Country: US (occurrence: US)
  Receive Date: 20200408
  Receipt Date: 20200513
  Transmission Date: 20200713
  Serious: No
  Sender: FDA-Public Use
  Company Number: US-009507513-2004USA002120

PATIENT
  Age: 71 Year
  Sex: Male

DRUGS (3)
  1. PROVENTIL [Suspect]
     Active Substance: ALBUTEROL
     Dosage: 2 DOSAGE FORM, QID (2 PUFFS, 4 TIMES DAILY)
     Dates: start: 20200403
  2. PROVENTIL [Suspect]
     Active Substance: ALBUTEROL
     Indication: ASTHMA
     Dosage: YEARS AGO
  3. PROVENTIL [Suspect]
     Active Substance: ALBUTEROL
     Dosage: 2 DOSAGE FORM, QD (2 PUFFS DAILY)

REACTIONS (7)
  - Product quality issue [Unknown]
  - No adverse event [Unknown]
  - Product use issue [Unknown]
  - Poor quality device used [Unknown]
  - Poor quality device used [Unknown]
  - Product dose omission [Unknown]
  - Product quality issue [Unknown]

NARRATIVE: CASE EVENT DATE: 20200403
